FAERS Safety Report 7310248-4 (Version None)
Quarter: 2011Q1

REPORT INFORMATION
  Report Type: 
  Country: None (occurrence: None)
  Receive Date: 20110224
  Receipt Date: 20110221
  Transmission Date: 20110831
  Serious: Yes (Other)
  Sender: FDA-Public Use
  Company Number: US-PFIZER INC-2011037769

PATIENT
  Sex: Female
  Weight: 92 kg

DRUGS (8)
  1. DEPAKOTE [Concomitant]
     Dosage: 625 MG, 3X/DAY
  2. MELATONIN [Concomitant]
     Indication: SLEEP DISORDER
     Dosage: 3 MG, UNK
  3. HALOPERIDOL [Concomitant]
     Dosage: 2 MG, 2X/DAY
  4. ZOLOFT [Suspect]
     Indication: OBSESSIVE-COMPULSIVE DISORDER
     Dosage: 25 MG, 2X/DAY
     Route: 048
     Dates: end: 20100101
  5. ZOLOFT [Suspect]
     Indication: DEPRESSION
     Dosage: 100 MG, 2X/DAY
     Dates: start: 20100101
  6. ZOLOFT [Suspect]
     Dosage: 200 MG, 2X/DAY
     Dates: start: 20110201
  7. FELBATOL [Concomitant]
     Dosage: UNK
  8. NEURONTIN [Concomitant]
     Dosage: 600 MG, 3X/DAY

REACTIONS (6)
  - DYSPHONIA [None]
  - IRRITABILITY [None]
  - MALAISE [None]
  - CONVULSION [None]
  - MOOD ALTERED [None]
  - FEELING ABNORMAL [None]
